FAERS Safety Report 8928159 (Version 1)
Quarter: 2012Q4

REPORT INFORMATION
  Report Type: 
  Country: BR (occurrence: BR)
  Receive Date: 20121128
  Receipt Date: 20121128
  Transmission Date: 20130627
  Serious: Yes (Hospitalization, Other)
  Sender: FDA-Public Use
  Company Number: PHHY2012BR108050

PATIENT
  Age: 79 Year
  Sex: Female

DRUGS (3)
  1. DIOVAN [Suspect]
     Indication: HYPERTENSION
     Dosage: 1 tablet (160mg) daily
     Route: 048
  2. DIOVAN [Suspect]
     Dosage: 1 tablet (320mg) daily
     Route: 048
  3. CAPTOPRIL [Concomitant]
     Indication: HYPERTENSION
     Dosage: 2 tablet (25mg) daily

REACTIONS (11)
  - Convulsion [Unknown]
  - Sleep apnoea syndrome [Not Recovered/Not Resolved]
  - Malaise [Unknown]
  - Feeling abnormal [Recovering/Resolving]
  - Visual impairment [Recovering/Resolving]
  - Slow response to stimuli [Recovering/Resolving]
  - Dyspnoea [Recovered/Resolved]
  - Diabetes mellitus [Recovering/Resolving]
  - Blood glucose abnormal [Unknown]
  - Hypoglycaemia [Unknown]
  - Blood pressure increased [Unknown]
